FAERS Safety Report 14651856 (Version 5)
Quarter: 2018Q2

REPORT INFORMATION
  Report Type: Spontaneous
  Country: FR (occurrence: FR)
  Receive Date: 20180317
  Receipt Date: 20180615
  Transmission Date: 20180711
  Serious: Yes (Death, Other)
  Sender: FDA-Public Use
  Company Number: FR-AUROBINDO-AUR-APL-2018-015388

PATIENT
  Age: 69 Year
  Sex: Female
  Weight: 35 kg

DRUGS (42)
  1. MEROPENEM. [Suspect]
     Active Substance: MEROPENEM
     Indication: PRODUCT USED FOR UNKNOWN INDICATION
     Dosage: UNK
     Route: 041
     Dates: start: 20180125, end: 201802
  2. BISOPROLOL [Suspect]
     Active Substance: BISOPROLOL
     Indication: PRODUCT USED FOR UNKNOWN INDICATION
     Dosage: UNK
     Route: 048
  3. PREDNISONE. [Suspect]
     Active Substance: PREDNISONE
     Indication: CHRONIC MYELOMONOCYTIC LEUKAEMIA
     Dosage: UNK
     Route: 041
     Dates: start: 20180116, end: 20180116
  4. FUNGIZONE [Suspect]
     Active Substance: AMPHOTERICIN B
     Indication: MUCOSAL INFLAMMATION
     Dosage: UNK
     Route: 002
     Dates: start: 20180125, end: 201802
  5. EXACYL [Suspect]
     Active Substance: TRANEXAMIC ACID
     Indication: PRODUCT USED FOR UNKNOWN INDICATION
     Dosage: UNK
     Route: 041
     Dates: start: 20180129, end: 201802
  6. ZARZIO [Suspect]
     Active Substance: FILGRASTIM
     Dosage: ()
     Route: 058
  7. VINCRISTINE [Suspect]
     Active Substance: VINCRISTINE
     Dosage: ()
     Route: 041
  8. ESCITALOPRAM [Suspect]
     Active Substance: ESCITALOPRAM OXALATE
     Dosage: ()
     Route: 048
  9. CIPROFLOXACIN. [Suspect]
     Active Substance: CIPROFLOXACIN
     Indication: PRODUCT USED FOR UNKNOWN INDICATION
     Dosage: UNK
     Route: 041
     Dates: start: 20180129
  10. EXACYL [Suspect]
     Active Substance: TRANEXAMIC ACID
     Dosage: ()
     Route: 065
  11. HEXTRIL [Suspect]
     Active Substance: HEXETIDINE
     Indication: MUCOSAL INFLAMMATION
     Dosage: UNK
     Route: 002
     Dates: start: 20180125, end: 201802
  12. VORAXAZE [Suspect]
     Active Substance: GLUCARPIDASE
     Indication: CHRONIC MYELOID LEUKAEMIA
  13. CYCLOPHOSPHAMIDE. [Suspect]
     Active Substance: CYCLOPHOSPHAMIDE
     Dosage: ()
     Route: 041
  14. ONDANSETRON [Suspect]
     Active Substance: ONDANSETRON
     Indication: NAUSEA
     Dosage: UNK
     Route: 048
     Dates: start: 20180124, end: 201802
  15. DOXORUBICIN [Suspect]
     Active Substance: DOXORUBICIN
     Indication: CHRONIC MYELOMONOCYTIC LEUKAEMIA
     Dosage: UNK
     Route: 041
     Dates: start: 20180116, end: 20180116
  16. LIDOCAINE. [Suspect]
     Active Substance: LIDOCAINE
     Dosage: ()
     Route: 002
  17. LIDOCAINE. [Suspect]
     Active Substance: LIDOCAINE
     Dosage: ()
     Route: 002
  18. BROMAZEPAM [Suspect]
     Active Substance: BROMAZEPAM
     Dosage: ()
     Route: 048
  19. VALACICLOVIR [Suspect]
     Active Substance: VALACYCLOVIR HYDROCHLORIDE
     Dosage: ()
     Route: 048
  20. EPREX [Suspect]
     Active Substance: ERYTHROPOIETIN
     Indication: PRODUCT USED FOR UNKNOWN INDICATION
     Dosage: UNK
     Route: 058
     Dates: start: 20180124, end: 201802
  21. LIDOCAINE. [Suspect]
     Active Substance: LIDOCAINE
     Indication: MUCOSAL INFLAMMATION
     Dosage: UNK
     Route: 002
     Dates: start: 20180125, end: 201802
  22. LIDOCAINE. [Suspect]
     Active Substance: LIDOCAINE
     Dosage: ()
     Route: 065
  23. METHOTREXATE. [Suspect]
     Active Substance: METHOTREXATE
     Dosage: UNK ()
     Route: 041
     Dates: start: 20180117
  24. CYCLOPHOSPHAMIDE. [Suspect]
     Active Substance: CYCLOPHOSPHAMIDE
     Indication: CHRONIC MYELOMONOCYTIC LEUKAEMIA
     Dosage: UNK
     Route: 041
     Dates: start: 20180116, end: 20180116
  25. FUROSEMIDE. [Suspect]
     Active Substance: FUROSEMIDE
     Indication: RENAL FAILURE
     Dosage: UNK
     Route: 048
     Dates: start: 20180129, end: 20180131
  26. ESCITALOPRAM [Suspect]
     Active Substance: ESCITALOPRAM OXALATE
     Indication: DEPRESSION
     Dosage: UNK
     Route: 048
     Dates: start: 20180124, end: 201802
  27. METHOTREXATE. [Suspect]
     Active Substance: METHOTREXATE
     Indication: CHRONIC MYELOMONOCYTIC LEUKAEMIA
     Dosage: UNK
     Route: 041
     Dates: start: 20180116, end: 20180116
  28. VINCRISTINE [Suspect]
     Active Substance: VINCRISTINE
     Indication: CHRONIC MYELOMONOCYTIC LEUKAEMIA
     Dosage: UNK
     Route: 041
     Dates: start: 20180116, end: 20180116
  29. VINCRISTINE [Suspect]
     Active Substance: VINCRISTINE
     Dosage: ()
     Route: 041
  30. VORAXAZE [Suspect]
     Active Substance: GLUCARPIDASE
     Indication: CHRONIC MYELOMONOCYTIC LEUKAEMIA
     Dosage: UNK
     Route: 041
     Dates: start: 20180118, end: 20180118
  31. BROMAZEPAM [Suspect]
     Active Substance: BROMAZEPAM
     Indication: PRODUCT USED FOR UNKNOWN INDICATION
     Dosage: UNK
     Route: 048
     Dates: start: 20180115, end: 20180129
  32. ONDANSETRON [Suspect]
     Active Substance: ONDANSETRON
     Dosage: ()
     Route: 048
  33. VALACICLOVIR [Suspect]
     Active Substance: VALACYCLOVIR HYDROCHLORIDE
     Indication: HERPES SIMPLEX
     Dosage: UNK
     Route: 048
     Dates: start: 20180124, end: 20180126
  34. PANTOPRAZOLE [Suspect]
     Active Substance: PANTOPRAZOLE
     Indication: PRODUCT USED FOR UNKNOWN INDICATION
     Dosage: ()
     Route: 041
     Dates: start: 20180126
  35. HEXTRIL [Suspect]
     Active Substance: HEXETIDINE
     Dosage: ()
     Route: 002
  36. RITUXIMAB. [Suspect]
     Active Substance: RITUXIMAB
     Indication: CHRONIC MYELOMONOCYTIC LEUKAEMIA
     Dosage: UNK
     Route: 041
     Dates: start: 20180116, end: 20180116
  37. RITUXIMAB. [Suspect]
     Active Substance: RITUXIMAB
     Dosage: ()
     Route: 041
  38. CALCIPARINE [Suspect]
     Active Substance: HEPARIN CALCIUM
     Indication: THROMBOSIS PROPHYLAXIS
     Dosage: UNK
     Route: 058
     Dates: start: 20180124, end: 201802
  39. CALCIPARINE [Suspect]
     Active Substance: HEPARIN CALCIUM
     Dosage: ()
     Route: 058
  40. ZARZIO [Suspect]
     Active Substance: FILGRASTIM
     Indication: PRODUCT USED FOR UNKNOWN INDICATION
     Dosage: UNK
     Route: 058
     Dates: start: 20180124, end: 201802
  41. CYCLOPHOSPHAMIDE. [Suspect]
     Active Substance: CYCLOPHOSPHAMIDE
     Dosage: ()
     Route: 041
  42. BACTRIM [Suspect]
     Active Substance: SULFAMETHOXAZOLE\TRIMETHOPRIM
     Indication: PRODUCT USED FOR UNKNOWN INDICATION
     Dosage: UNK
     Route: 048
     Dates: start: 20180124, end: 20180126

REACTIONS (3)
  - Off label use [Unknown]
  - Product use in unapproved indication [Unknown]
  - Toxic epidermal necrolysis [Fatal]

NARRATIVE: CASE EVENT DATE: 20180131
